FAERS Safety Report 7009394-4 (Version None)
Quarter: 2010Q3

REPORT INFORMATION
  Report Type: 
  Country: None (occurrence: None)
  Receive Date: 20100921
  Receipt Date: 20061006
  Transmission Date: 20110219
  Serious: Yes (Hospitalization)
  Sender: FDA-Public Use
  Company Number: US-SEPTODONT-200600073

PATIENT
  Age: 52 Year
  Sex: Male
  Weight: 190 kg

DRUGS (3)
  1. SEPTOCAINE [Suspect]
     Indication: ENDODONTIC PROCEDURE
     Dosage: 1.7 ML DENTAL
     Route: 004
     Dates: start: 20060424
  2. ZOXOR (SIMVASTATIN) [Concomitant]
  3. BENZO GEL (BENZOCAINE 20%) [Concomitant]

REACTIONS (5)
  - BACTERAEMIA [None]
  - FEELING COLD [None]
  - HYPERSENSITIVITY [None]
  - PYREXIA [None]
  - TREMOR [None]
